FAERS Safety Report 21320912 (Version 1)
Quarter: 2022Q3

REPORT INFORMATION
  Report Type: Report from Study
  Country: US (occurrence: US)
  Receive Date: 20220912
  Receipt Date: 20220912
  Transmission Date: 20221027
  Serious: No
  Sender: FDA-Public Use
  Company Number: US-NOVARTISTESTPH-NVSC2022US204491

PATIENT
  Sex: Male

DRUGS (2)
  1. COSENTYX [Suspect]
     Active Substance: SECUKINUMAB
     Indication: Psoriasis
     Dosage: 300 MG, OTHER, EVERY WEEK X 5 WEEKS THEN EVERY 4 WEEKS
     Route: 058
     Dates: start: 202207
  2. COSENTYX [Suspect]
     Active Substance: SECUKINUMAB
     Indication: Psoriatic arthropathy
     Dosage: UNK  (LAST DOSE ADMINISTERED)
     Route: 065
     Dates: start: 20220907

REACTIONS (3)
  - Tendonitis [Unknown]
  - Arthralgia [Unknown]
  - Drug ineffective [Unknown]
